FAERS Safety Report 5856157-9 (Version None)
Quarter: 2008Q3

REPORT INFORMATION
  Report Type: 
  Country: None (occurrence: None)
  Receive Date: 20080825
  Receipt Date: 20080811
  Transmission Date: 20090109
  Serious: Yes (Hospitalization)
  Sender: FDA-Public Use
  Company Number: GB-GENENTECH-265730

PATIENT
  Sex: Female

DRUGS (16)
  1. BLINDED BEVACIZUMAB [Suspect]
     Indication: BREAST CANCER METASTATIC
     Dosage: 1 UNK, Q3W
     Dates: start: 20060629, end: 20060831
  2. DOCETAXEL [Suspect]
     Indication: BREAST CANCER METASTATIC
     Dosage: 1 UNK, Q3W
     Dates: start: 20060629, end: 20060831
  3. BLINDED PLACEBO [Suspect]
     Indication: BREAST CANCER METASTATIC
     Dosage: 1 UNK, Q3W
     Dates: start: 20060629, end: 20060831
  4. BLINDED BEVACIZUMAB [Suspect]
     Dosage: 825 MG, Q3W
  5. DOCETAXEL [Suspect]
     Dosage: 825 MG, Q3W
  6. BLINDED PLACEBO [Suspect]
     Dosage: 825 MG, Q3W
  7. BEVACIZUMAB [Suspect]
     Indication: BREAST CANCER METASTATIC
     Dosage: 825 MG, Q3W
     Dates: start: 20070809, end: 20080424
  8. CAPECITABINE [Suspect]
     Indication: BREAST CANCER METASTATIC
     Dosage: 1400 MG, BID
     Route: 048
     Dates: start: 20070809, end: 20080426
  9. DOCETAXEL [Suspect]
     Indication: BREAST CANCER METASTATIC
     Dosage: 150 MG, Q3W
     Dates: start: 20060629
  10. DOCETAXEL [Suspect]
     Dosage: 110 MG, UNK
     Dates: start: 20060831
  11. DOCETAXEL [Suspect]
     Dosage: 90 MG, UNK
     Dates: start: 20060922
  12. IBANDRONATE [Concomitant]
     Indication: DRUG USE FOR UNKNOWN INDICATION
     Dosage: UNK
     Dates: start: 20060401
  13. CITALOPRAM HYDROBROMIDE [Concomitant]
     Indication: DRUG USE FOR UNKNOWN INDICATION
     Dosage: UNK
     Dates: start: 20050601
  14. ZOPICLONE [Concomitant]
     Indication: DRUG USE FOR UNKNOWN INDICATION
     Dosage: UNK
     Dates: start: 20051001
  15. DIAZEPAM [Concomitant]
     Indication: DRUG USE FOR UNKNOWN INDICATION
     Dosage: UNK
     Dates: start: 20050101
  16. LOPERAMIDE HCL [Concomitant]
     Indication: DRUG USE FOR UNKNOWN INDICATION
     Dosage: UNK
     Dates: start: 20070901

REACTIONS (1)
  - JAUNDICE CHOLESTATIC [None]
